FAERS Safety Report 11875399 (Version 1)
Quarter: 2015Q4

REPORT INFORMATION
  Report Type: Spontaneous
  Country: US (occurrence: US)
  Receive Date: 20151229
  Receipt Date: 20151229
  Transmission Date: 20160305
  Serious: Yes (Hospitalization)
  Sender: FDA-Public Use
  Company Number: US-BEH-2015057244

PATIENT
  Age: 61 Year
  Sex: Female
  Weight: 70 kg

DRUGS (27)
  1. HIZENTRA [Suspect]
     Active Substance: HUMAN IMMUNOGLOBULIN G
     Indication: HYPOGAMMAGLOBULINAEMIA
     Route: 058
  2. DIPHENHYDRAMINE. [Concomitant]
     Active Substance: DIPHENHYDRAMINE
  3. MEDROL [Concomitant]
     Active Substance: METHYLPREDNISOLONE
  4. XANAX [Concomitant]
     Active Substance: ALPRAZOLAM
  5. MULTIVITAMINS AND IRON [Concomitant]
  6. RESTASIS [Concomitant]
     Active Substance: CYCLOSPORINE
  7. CALCIUM+D [Concomitant]
  8. XOPENEX [Concomitant]
     Active Substance: LEVALBUTEROL HYDROCHLORIDE
  9. PATANOL [Concomitant]
     Active Substance: OLOPATADINE HYDROCHLORIDE
  10. METAMUCIL [Concomitant]
     Active Substance: PLANTAGO SEED
  11. KLOR-CON [Concomitant]
     Active Substance: POTASSIUM CHLORIDE
  12. HIZENTRA [Suspect]
     Active Substance: HUMAN IMMUNOGLOBULIN G
     Route: 058
  13. SYNTHROID [Concomitant]
     Active Substance: LEVOTHYROXINE SODIUM
  14. HIZENTRA [Suspect]
     Active Substance: HUMAN IMMUNOGLOBULIN G
  15. PROTONIX [Concomitant]
     Active Substance: PANTOPRAZOLE SODIUM
  16. LIPITOR [Concomitant]
     Active Substance: ATORVASTATIN CALCIUM
  17. ASMANEX [Concomitant]
     Active Substance: MOMETASONE FUROATE
  18. ZYRTEC [Concomitant]
     Active Substance: CETIRIZINE HYDROCHLORIDE
  19. ATORVASTATIN [Concomitant]
     Active Substance: ATORVASTATIN
  20. LIDOCAINE. [Concomitant]
     Active Substance: LIDOCAINE
  21. PROBIOTIC [Concomitant]
     Active Substance: PROBIOTICS NOS
  22. HIZENTRA [Suspect]
     Active Substance: HUMAN IMMUNOGLOBULIN G
     Route: 058
  23. ACETAMINOPHEN. [Concomitant]
     Active Substance: ACETAMINOPHEN
  24. COZAAR [Concomitant]
     Active Substance: LOSARTAN POTASSIUM
  25. EPIPEN [Concomitant]
     Active Substance: EPINEPHRINE
  26. SINGULAIR [Concomitant]
     Active Substance: MONTELUKAST SODIUM
  27. VITAMIN B12 [Concomitant]
     Active Substance: CYANOCOBALAMIN

REACTIONS (3)
  - Peripheral swelling [Unknown]
  - Intervertebral disc protrusion [Unknown]
  - Sinusitis [Unknown]

NARRATIVE: CASE EVENT DATE: 20151204
